FAERS Safety Report 5238467-1 (Version None)
Quarter: 2007Q1

REPORT INFORMATION
  Report Type: 
  Country: None (occurrence: None)
  Receive Date: 20070215
  Receipt Date: 20070209
  Transmission Date: 20070707
  Serious: Yes (Other)
  Sender: FDA-Public Use
  Company Number: SE-ELI_LILLY_AND_COMPANY-SE200701005284

PATIENT
  Age: 41 Year
  Sex: Male

DRUGS (4)
  1. SOMATROPIN [Suspect]
     Indication: GROWTH HORMONE DEFICIENCY
     Dosage: 0.6 MG, DAILY (1/D)
     Route: 058
     Dates: start: 20031016
  2. LEVAXIN [Concomitant]
     Indication: SECONDARY HYPOTHYROIDISM
     Dosage: 150 UG, DAILY (1/D)
     Route: 048
     Dates: start: 19710101
  3. BISOPROLOL FUMARATE [Concomitant]
     Indication: HYPERTENSION
     Dosage: 10 MG, DAILY (1/D)
     Route: 048
     Dates: start: 19980717
  4. FELODIPINE [Concomitant]
     Indication: HYPERTENSION
     Dosage: 5 MG, DAILY (1/D)
     Route: 048
     Dates: start: 20050518

REACTIONS (1)
  - DIABETES MELLITUS NON-INSULIN-DEPENDENT [None]
